FAERS Safety Report 4606397-1 (Version None)
Quarter: 2005Q2

REPORT INFORMATION
  Report Type: 
  Country: None (occurrence: None)
  Receive Date: 20050223
  Receipt Date: 20041101
  Transmission Date: 20051028
  Serious: Yes (Life-Threatening, Hospitalization, Disabling, Other)
  Sender: FDA-Public Use
  Company Number: WAES  0411USA00261

PATIENT
  Age: 75 Year
  Sex: Female
  Weight: 69.4003 kg

DRUGS (11)
  1. ZOCOR [Suspect]
     Indication: DYSLIPIDAEMIA
     Dosage: 80 MG/PM/PO
     Route: 048
     Dates: start: 20040822, end: 20040913
  2. COREG [Concomitant]
  3. DIOVAC [Concomitant]
  4. IMDUR [Concomitant]
  5. KEFLEX [Concomitant]
  6. LASIX [Concomitant]
  7. NORVASC [Concomitant]
  8. PAXIL [Concomitant]
  9. PLAVIX [Concomitant]
  10. IRON (UNSPECIFIED) [Concomitant]
  11. POTASSIUM CHLORIDE [Concomitant]

REACTIONS (3)
  - LIVER FUNCTION TEST ABNORMAL [None]
  - RENAL FAILURE [None]
  - RHABDOMYOLYSIS [None]
